FAERS Safety Report 8572287-5 (Version None)
Quarter: 2012Q3

REPORT INFORMATION
  Report Type: 
  Country: None (occurrence: None)
  Receive Date: 20120806
  Receipt Date: 20120727
  Transmission Date: 20120928
  Serious: Yes (Life-Threatening, Hospitalization, Other)
  Sender: FDA-Public Use
  Company Number: JP-VERTEX PHARMACEUTICALS INC.-AE-2012-004723

PATIENT
  Age: 66 Year
  Sex: Female

DRUGS (8)
  1. REBETOL [Concomitant]
     Route: 048
     Dates: start: 20120328, end: 20120419
  2. REBETOL [Concomitant]
     Indication: HEPATITIS C
     Route: 048
     Dates: start: 20120207, end: 20120313
  3. ACETAMINOPHEN [Concomitant]
     Route: 048
     Dates: start: 20120207
  4. LEDOLPER [Concomitant]
     Route: 048
     Dates: start: 20120207
  5. TELAVIC (TELAPREVIR) [Suspect]
     Indication: HEPATITIS C
     Route: 048
     Dates: start: 20120207, end: 20120417
  6. TELAVIC (TELAPREVIR) [Suspect]
     Route: 048
     Dates: start: 20120418, end: 20120419
  7. REBETOL [Concomitant]
     Route: 048
     Dates: start: 20120314, end: 20120327
  8. PEGINTERFERON ALFA-2B [Concomitant]
     Indication: HEPATITIS C
     Route: 058
     Dates: start: 20120207, end: 20120417

REACTIONS (3)
  - IDIOPATHIC THROMBOCYTOPENIC PURPURA [None]
  - SKIN DISORDER [None]
  - MALAISE [None]
